FAERS Safety Report 4948618-1 (Version None)
Quarter: 2006Q1

REPORT INFORMATION
  Report Type: 
  Country: None (occurrence: None)
  Receive Date: 20060313
  Receipt Date: 20060227
  Transmission Date: 20060701
  Serious: Yes (Other)
  Sender: FDA-Public Use
  Company Number: 2006031090

PATIENT
  Age: 65 Year
  Sex: 0

DRUGS (8)
  1. VIAGRA [Suspect]
     Indication: ILL-DEFINED DISORDER
  2. ASPIRIN [Concomitant]
  3. ATORVASTATIN CALCIUM [Concomitant]
  4. AVELOX [Concomitant]
  5. LASIX [Concomitant]
  6. ALDACTONE [Concomitant]
  7. CORDARONE [Concomitant]
  8. ACCUPRIL [Concomitant]

REACTIONS (1)
  - OPTIC ISCHAEMIC NEUROPATHY [None]
